FAERS Safety Report 6699969-4 (Version None)
Quarter: 2010Q2

REPORT INFORMATION
  Report Type: 
  Country: None (occurrence: None)
  Receive Date: 20100428
  Receipt Date: 20100422
  Transmission Date: 20101027
  Serious: Yes (Death)
  Sender: FDA-Public Use
  Company Number: PHHY2010US23163

PATIENT
  Sex: Female
  Weight: 44 kg

DRUGS (3)
  1. GLEEVEC [Suspect]
     Indication: SARCOMA UTERUS
     Dosage: 100 MG, BID
     Route: 048
     Dates: start: 20100303
  2. CHEMOTHERAPEUTICS NOS [Concomitant]
  3. ANTIARRHYTHMICS [Concomitant]

REACTIONS (2)
  - ENDOMETRIAL CANCER [None]
  - SARCOMA UTERUS [None]
